FAERS Safety Report 21071811 (Version 1)
Quarter: 2022Q3

REPORT INFORMATION
  Report Type: Spontaneous
  Country: US (occurrence: US)
  Receive Date: 20220712
  Receipt Date: 20220712
  Transmission Date: 20221026
  Serious: Yes (Hospitalization)
  Sender: FDA-Public Use
  Company Number: US-NOVOPROD-921728

PATIENT
  Sex: Female

DRUGS (3)
  1. RYBELSUS [Suspect]
     Active Substance: SEMAGLUTIDE
     Dosage: 7 MG
     Route: 048
  2. RYBELSUS [Suspect]
     Active Substance: SEMAGLUTIDE
     Indication: Product used for unknown indication
     Dosage: 3 MG
     Route: 048
  3. METFORMIN [Concomitant]
     Active Substance: METFORMIN HYDROCHLORIDE
     Indication: Product used for unknown indication
     Dosage: UNK
     Route: 058

REACTIONS (3)
  - Acute kidney injury [Recovered/Resolved]
  - Nausea [Recovered/Resolved]
  - Vomiting [Recovered/Resolved]
